FAERS Safety Report 4673189-7 (Version None)
Quarter: 2005Q2

REPORT INFORMATION
  Report Type: 
  Country: None (occurrence: None)
  Receive Date: 20050523
  Receipt Date: 20050523
  Transmission Date: 20051028
  Serious: Yes (Other)
  Sender: FDA-Public Use
  Company Number: None

PATIENT
  Age: 86 Year
  Sex: Female
  Weight: 101.6 kg

DRUGS (6)
  1. TERAZOSIN [Suspect]
  2. LOVASTATIN [Concomitant]
  3. FELODIPINE [Concomitant]
  4. HCTZ 25/TRIAMTERENE [Concomitant]
  5. SELEGILINE HCL [Concomitant]
  6. CARBIDOPA 25/LEVODOPA [Concomitant]

REACTIONS (1)
  - HYPOTENSION [None]
